FAERS Safety Report 11433022 (Version 1)
Quarter: 2015Q3

REPORT INFORMATION
  Report Type: Spontaneous
  Country: US (occurrence: US)
  Receive Date: 20150829
  Receipt Date: 20150829
  Transmission Date: 20151125
  Serious: No
  Sender: FDA-Public Use
  Company Number: US-009507513-1508USA008017

PATIENT
  Sex: Female
  Weight: 89.8 kg

DRUGS (1)
  1. NEXPLANON [Suspect]
     Active Substance: ETONOGESTREL
     Indication: CONTRACEPTION
     Dosage: 68 MG, EVERY 3 YEAR
     Route: 059
     Dates: start: 20150724

REACTIONS (5)
  - Device difficult to use [Unknown]
  - Product quality issue [Unknown]
  - Complication of device insertion [Unknown]
  - No adverse event [Unknown]
  - Device breakage [Unknown]

NARRATIVE: CASE EVENT DATE: 20150724
